FAERS Safety Report 8834848 (Version 1)
Quarter: 2012Q4

REPORT INFORMATION
  Report Type: Spontaneous
  Country: DK (occurrence: None)
  Receive Date: 20121009
  Receipt Date: 20121009
  Transmission Date: 20130627
  Serious: Yes (Life-Threatening, Hospitalization)
  Sender: FDA-Public Use
  Company Number: 2012MA012026

PATIENT
  Age: 21 Year
  Sex: Female

DRUGS (6)
  1. IBUPROFEN [Suspect]
     Indication: INTENTIONAL OVERDOSE
     Route: 048
     Dates: start: 20120829, end: 20120829
  2. DIAZEPAM [Suspect]
     Indication: INTENTIONAL OVERDOSE
     Route: 048
     Dates: start: 20120829, end: 20120829
  3. CODEINE [Suspect]
     Indication: INTENTIONAL OVERDOSE
     Route: 048
     Dates: start: 20120829, end: 20120829
  4. AMITRIPTYLINE [Suspect]
     Indication: INTENTIONAL OVERDOSE
     Route: 048
     Dates: start: 20120828, end: 20120829
  5. SERTRALINE HYDROCHLORIDE [Suspect]
     Indication: INTENTIONAL OVERDOSE
     Route: 048
     Dates: start: 20120829, end: 20120829
  6. ACETAMINOPHEN + CODEINE PHOSPHATE [Suspect]
     Indication: INTENTIONAL OVERDOSE
     Route: 048
     Dates: start: 20120829, end: 20120829

REACTIONS (10)
  - Intentional overdose [None]
  - Aggression [None]
  - Somnolence [None]
  - Respiratory depression [None]
  - Aspartate aminotransferase increased [None]
  - Amylase increased [None]
  - Blood lactate dehydrogenase increased [None]
  - Abdominal pain upper [None]
  - Liver disorder [None]
  - Gastric disorder [None]
